FAERS Safety Report 7743739-2 (Version None)
Quarter: 2011Q3

REPORT INFORMATION
  Report Type: 
  Country: None (occurrence: None)
  Receive Date: 20110909
  Receipt Date: 20110909
  Transmission Date: 20111222
  Serious: Yes (Life-Threatening, Disabling)
  Sender: FDA-Public Use
  Company Number: None

PATIENT
  Sex: Male
  Weight: 86.1834 kg

DRUGS (1)
  1. ZIPRASIDONE HYDROCHLORIDE [Suspect]
     Indication: BIPOLAR DISORDER
     Dosage: 20 MG 2X DAY

REACTIONS (12)
  - URINARY INCONTINENCE [None]
  - DRY MOUTH [None]
  - POLLAKIURIA [None]
  - PAIN [None]
  - MUSCLE SPASMS [None]
  - HEART RATE DECREASED [None]
  - MUSCULOSKELETAL STIFFNESS [None]
  - THROAT TIGHTNESS [None]
  - CARDIAC MURMUR [None]
  - SYNCOPE [None]
  - DYSPNOEA [None]
  - FATIGUE [None]
